FAERS Safety Report 9669642 (Version 1)
Quarter: 2013Q4

REPORT INFORMATION
  Report Type: Other
  Country: DE (occurrence: JP)
  Receive Date: 20131105
  Receipt Date: 20131105
  Transmission Date: 20140711
  Serious: Yes (Hospitalization)
  Sender: FDA-Public Use
  Company Number: JP-FRI-1000050678

PATIENT
  Age: 69 Year
  Sex: Female

DRUGS (6)
  1. MEMANTINE [Suspect]
     Indication: DEMENTIA ALZHEIMER^S TYPE
     Dosage: 5 MG
     Route: 048
  2. MEMANTINE [Suspect]
     Dosage: 10 MG
     Route: 048
  3. MEMANTINE [Suspect]
     Dosage: 15 MG
     Route: 048
  4. MEMANTINE [Suspect]
     Dosage: 20 MG
     Route: 048
  5. ABILIFY R [Suspect]
  6. REMINYL [Concomitant]

REACTIONS (1)
  - Rhabdomyolysis [Recovered/Resolved]
